FAERS Safety Report 6076399-X (Version None)
Quarter: 2009Q1

REPORT INFORMATION
  Report Type: 
  Country: None (occurrence: None)
  Receive Date: 20090209
  Receipt Date: 20090123
  Transmission Date: 20090719
  Serious: Yes (Death)
  Sender: FDA-Public Use
  Company Number: 8042247

PATIENT
  Age: 81 Year
  Sex: Female

DRUGS (8)
  1. KEPPRA [Suspect]
     Indication: EPILEPSY
     Dosage: 500 MG 2/D PO
     Route: 048
     Dates: start: 20080601, end: 20081127
  2. AMOXICILLIN [Suspect]
     Indication: BRONCHITIS
     Dosage: 1 G 3/D PO
     Route: 048
     Dates: start: 20081118, end: 20081127
  3. RULID [Suspect]
     Dosage: 150 MG 2/D PO
     Route: 048
     Dates: start: 20081121, end: 20081127
  4. TARDYFERON /00023503/ [Concomitant]
  5. INEXIUM /01479302/ [Concomitant]
  6. URBANYL [Concomitant]
  7. SEROPRAM /00582602/ [Concomitant]
  8. PARACETAMOL [Concomitant]

REACTIONS (5)
  - AGRANULOCYTOSIS [None]
  - BRONCHITIS [None]
  - HAEMODYNAMIC INSTABILITY [None]
  - HAEMOGLOBIN DECREASED [None]
  - SHOCK [None]
